FAERS Safety Report 24425582 (Version 2)
Quarter: 2024Q4

REPORT INFORMATION
  Report Type: Spontaneous
  Country: US (occurrence: US)
  Receive Date: 20241011
  Receipt Date: 20241025
  Transmission Date: 20250115
  Serious: Yes (Death)
  Sender: NOVARTIS
  Company Number: US-002147023-NVSC2024US199666

PATIENT
  Age: 76 Year
  Sex: Male

DRUGS (1)
  1. PLUVICTO [Suspect]
     Active Substance: LUTETIUM LU-177 VIPIVOTIDE TETRAXETAN
     Indication: Hormone-refractory prostate cancer
     Dosage: 200 MCI (6 WEEKS)
     Route: 042
     Dates: start: 20240312, end: 20240828

REACTIONS (2)
  - Myocardial infarction [Fatal]
  - Hyperhidrosis [Unknown]

NARRATIVE: CASE EVENT DATE: 20241007
